FAERS Safety Report 4338968-4 (Version None)
Quarter: 2004Q1

REPORT INFORMATION
  Report Type: 
  Country: None (occurrence: None)
  Receive Date: 20040329
  Receipt Date: 20040204
  Transmission Date: 20041129
  Serious: No
  Sender: FDA-Public Use
  Company Number: USA040258549

PATIENT
  Age: 40 Year
  Sex: Male
  Weight: 91 kg

DRUGS (9)
  1. STRATTERA [Suspect]
     Indication: ATTENTION DEFICIT/HYPERACTIVITY DISORDER
     Dosage: 105 MG/IN THE MORNING
     Dates: start: 20031201
  2. STRATTERA [Suspect]
     Indication: BIPOLAR I DISORDER
     Dosage: 105 MG/IN THE MORNING
     Dates: start: 20031201
  3. SYNTHROID [Concomitant]
  4. ATENOLOL [Concomitant]
  5. NIASPAN [Concomitant]
  6. CENTRUM PERFORMANCE MULTIVITAMIN [Concomitant]
  7. ASPIRIN [Concomitant]
  8. ASPIRIN [Concomitant]
  9. DESIPRAMINE HCL [Concomitant]

REACTIONS (2)
  - DRUG EFFECT DECREASED [None]
  - PRESCRIBED OVERDOSE [None]
